FAERS Safety Report 21168104 (Version 1)
Quarter: 2022Q3

REPORT INFORMATION
  Report Type: Spontaneous
  Country: US (occurrence: None)
  Receive Date: 20220803
  Receipt Date: 20220803
  Transmission Date: 20221026
  Serious: Yes (Hospitalization)
  Sender: FDA-Public Use
  Company Number: None

PATIENT
  Age: 69 Year
  Sex: Male

DRUGS (1)
  1. ENBREL [Suspect]
     Active Substance: ETANERCEPT
     Dosage: FREQUENCY : DAILY;?
     Route: 048
     Dates: start: 202201, end: 202208

REACTIONS (3)
  - Skin discolouration [None]
  - Pulmonary oedema [None]
  - Osteoarthritis [None]

NARRATIVE: CASE EVENT DATE: 20220701
